FAERS Safety Report 14554197 (Version 1)
Quarter: 2018Q1

REPORT INFORMATION
  Report Type: Spontaneous
  Country: US (occurrence: US)
  Receive Date: 20180208
  Receipt Date: 20180208
  Transmission Date: 20180509
  Serious: Yes (Hospitalization)
  Sender: FDA-Public Use
  Company Number: None

PATIENT
  Age: 77 Year
  Sex: Male
  Weight: 204.8 kg

DRUGS (1)
  1. CANAGLIFLOZIN [Suspect]
     Active Substance: CANAGLIFLOZIN
     Indication: DIABETES MELLITUS
     Route: 048
     Dates: start: 20150715, end: 20150806

REACTIONS (7)
  - Lactic acidosis [None]
  - Dry mouth [None]
  - Blood glucose increased [None]
  - Nausea [None]
  - Polyuria [None]
  - Blood potassium increased [None]
  - Blood urea increased [None]

NARRATIVE: CASE EVENT DATE: 20150729
